FAERS Safety Report 4859690-1 (Version None)
Quarter: 2005Q4

REPORT INFORMATION
  Report Type: 
  Country: None (occurrence: None)
  Receive Date: 20051219
  Receipt Date: 20051213
  Transmission Date: 20060501
  Serious: Yes (Death)
  Sender: FDA-Public Use
  Company Number: US-JNJFOC-20051203228

PATIENT
  Sex: Male

DRUGS (10)
  1. FLEXERIL [Suspect]
     Indication: DRUG USE FOR UNKNOWN INDICATION
     Route: 048
  2. SERUQUEL [Concomitant]
  3. SYNTHROID [Concomitant]
  4. REMINYL [Concomitant]
  5. COMBIVENT [Concomitant]
  6. COMBIVENT [Concomitant]
  7. AMBIEN [Concomitant]
  8. DARVOCET [Concomitant]
  9. DARVOCET [Concomitant]
  10. AVANDIA [Concomitant]

REACTIONS (1)
  - CARDIAC ARREST [None]
